FAERS Safety Report 19878144 (Version 2)
Quarter: 2021Q4

REPORT INFORMATION
  Report Type: Spontaneous
  Country: US (occurrence: US)
  Receive Date: 20210923
  Receipt Date: 20211004
  Transmission Date: 20220303
  Serious: Yes (Hospitalization)
  Sender: FDA-Public Use
  Company Number: US-TEVA-2021-US-1955455

PATIENT
  Age: 35 Year
  Sex: Female

DRUGS (2)
  1. TRIAMCINOLONE [Suspect]
     Active Substance: TRIAMCINOLONE
     Indication: Maculopathy
     Route: 050
  2. TRIAMCINOLONE [Suspect]
     Active Substance: TRIAMCINOLONE
     Dosage: APPROXIMATELY EVERY 3-4 MONTHS
     Route: 050

REACTIONS (1)
  - Cataract [Recovered/Resolved]
